FAERS Safety Report 15322332 (Version 1)
Quarter: 2018Q3

REPORT INFORMATION
  Report Type: Spontaneous
  Country: DE (occurrence: DE)
  Receive Date: 20180827
  Receipt Date: 20180827
  Transmission Date: 20181010
  Serious: Yes (Death, Other)
  Sender: FDA-Public Use
  Company Number: PHHY2018DE082625

PATIENT
  Age: 63 Year

DRUGS (1)
  1. PACLITAXEL. [Suspect]
     Active Substance: PACLITAXEL
     Indication: HEAD AND NECK CANCER
     Dosage: 20 MG/M2, TWICE PER WEEK
     Route: 065

REACTIONS (3)
  - Anaemia [Fatal]
  - Mucosal inflammation [Fatal]
  - Malignant neoplasm progression [Fatal]
